FAERS Safety Report 18857413 (Version 3)
Quarter: 2021Q1

REPORT INFORMATION
  Report Type: Spontaneous
  Country: RO (occurrence: RO)
  Receive Date: 20210208
  Receipt Date: 20210223
  Transmission Date: 20210420
  Serious: Yes (Life-Threatening, Hospitalization, Other)
  Sender: FDA-Public Use
  Company Number: RO-AUROBINDO-AUR-APL-2021-003872

PATIENT
  Age: 66 Year
  Sex: Female

DRUGS (12)
  1. BROMAZEPAM [Suspect]
     Active Substance: BROMAZEPAM
     Indication: PERSISTENT DEPRESSIVE DISORDER
     Dosage: 1.5 MILLIGRAM, TWO TIMES A DAY
     Route: 065
     Dates: start: 201205
  2. LORAZEPAM. [Suspect]
     Active Substance: LORAZEPAM
     Dosage: 1 MILLIGRAM, TWO TIMES A DAY
     Route: 065
     Dates: start: 2012
  3. LEVODOPA [Concomitant]
     Active Substance: LEVODOPA
     Indication: PARKINSON^S DISEASE
     Dosage: UNK
     Route: 065
     Dates: start: 2018
  4. RISPERIDONE. [Concomitant]
     Active Substance: RISPERIDONE
     Indication: PERSISTENT DEPRESSIVE DISORDER
     Dosage: 5 MILLILITER, ONCE A DAY
     Route: 065
  5. OLANZAPINE. [Suspect]
     Active Substance: OLANZAPINE
     Indication: MIXED ANXIETY AND DEPRESSIVE DISORDER
     Dosage: 15 MILLIGRAM, ONCE A DAY
     Route: 065
     Dates: start: 201205, end: 2018
  6. NEBIVOLOL  TABLET [Suspect]
     Active Substance: NEBIVOLOL
     Indication: PRODUCT USED FOR UNKNOWN INDICATION
     Dosage: UNK 150
     Route: 048
  7. LORAZEPAM. [Suspect]
     Active Substance: LORAZEPAM
     Indication: PRODUCT USED FOR UNKNOWN INDICATION
     Dosage: 2 MILLIGRAM, ONCE A DAY
     Route: 048
  8. ZOPICLONE [Suspect]
     Active Substance: ZOPICLONE
     Indication: PRODUCT USED FOR UNKNOWN INDICATION
     Dosage: UNK 150
     Route: 048
  9. MIRTAZAPINE. [Suspect]
     Active Substance: MIRTAZAPINE
     Indication: MIXED ANXIETY AND DEPRESSIVE DISORDER
     Dosage: 30 MILLIGRAM, ONCE A DAY
     Route: 065
     Dates: start: 201205
  10. MIRTAZAPINE. [Suspect]
     Active Substance: MIRTAZAPINE
     Indication: PERSISTENT DEPRESSIVE DISORDER
  11. OLANZAPINE. [Suspect]
     Active Substance: OLANZAPINE
     Indication: PERSISTENT DEPRESSIVE DISORDER
  12. QUETIAPINE. [Concomitant]
     Active Substance: QUETIAPINE
     Indication: PRODUCT USED FOR UNKNOWN INDICATION
     Dosage: UNK
     Route: 065

REACTIONS (18)
  - Toxicity to various agents [Unknown]
  - Feelings of worthlessness [Unknown]
  - Affective disorder [Unknown]
  - Feeling abnormal [Unknown]
  - Anxiety [Unknown]
  - Crying [Unknown]
  - Intentional overdose [Unknown]
  - Product use in unapproved indication [Unknown]
  - Mood altered [Unknown]
  - Suicide attempt [Recovered/Resolved]
  - Off label use [Unknown]
  - Drug intolerance [Unknown]
  - Persecutory delusion [Unknown]
  - Insomnia [Unknown]
  - Intentional self-injury [Unknown]
  - Overdose [Unknown]
  - Affect lability [Unknown]
  - Helplessness [Unknown]
